FAERS Safety Report 11889937 (Version 1)
Quarter: 2016Q1

REPORT INFORMATION
  Report Type: Spontaneous
  Country: US (occurrence: US)
  Receive Date: 20160105
  Receipt Date: 20160105
  Transmission Date: 20160526
  Serious: No
  Sender: FDA-Public Use
  Company Number: US-PERRIGO-15US005632

PATIENT
  Age: 79 Year
  Sex: Female
  Weight: 82.99 kg

DRUGS (4)
  1. GUAIFENESIN 600 MG 498 [Suspect]
     Active Substance: GUAIFENESIN
     Indication: RHINORRHOEA
     Dosage: 600 MG, SINGLE AT 1200
     Route: 048
     Dates: start: 20150531, end: 20150531
  2. SYNTHROID [Concomitant]
     Active Substance: LEVOTHYROXINE SODIUM
     Indication: GOITRE
     Dosage: UNK
     Route: 065
  3. LIPITOR [Concomitant]
     Active Substance: ATORVASTATIN CALCIUM
     Indication: BLOOD CHOLESTEROL INCREASED
     Dosage: UNK
     Route: 065
  4. GUAIFENESIN 600 MG 498 [Suspect]
     Active Substance: GUAIFENESIN
     Indication: PYREXIA

REACTIONS (2)
  - Cough [Recovered/Resolved]
  - Drug ineffective for unapproved indication [Unknown]

NARRATIVE: CASE EVENT DATE: 20150531
